FAERS Safety Report 7415945-8 (Version None)
Quarter: 2011Q2

REPORT INFORMATION
  Report Type: 
  Country: None (occurrence: None)
  Receive Date: 20110414
  Receipt Date: 20110408
  Transmission Date: 20111010
  Serious: Yes (Disabling)
  Sender: FDA-Public Use
  Company Number: PHHY2011GB29188

PATIENT

DRUGS (2)
  1. ALBUTEROL SULFATE AUTOHALER [Concomitant]
     Indication: ASTHMA
     Dosage: 2 DF, PRN
  2. LISINOPRIL [Suspect]
     Dosage: 10 MG, QD
     Route: 048
     Dates: start: 20101213, end: 20110311

REACTIONS (1)
  - RAYNAUD'S PHENOMENON [None]
